FAERS Safety Report 10102948 (Version 1)
Quarter: 2014Q2

REPORT INFORMATION
  Report Type: Spontaneous
  Country: US (occurrence: US)
  Receive Date: 20140424
  Receipt Date: 20140424
  Transmission Date: 20141212
  Serious: No
  Sender: FDA-Public Use
  Company Number: US-BRISTOL-MYERS SQUIBB COMPANY-19985027

PATIENT
  Age: 64 Year
  Sex: Female
  Weight: 117.91 kg

DRUGS (10)
  1. ELIQUIS [Suspect]
     Indication: ATRIAL FIBRILLATION
  2. COUMADIN [Suspect]
  3. XARELTO [Suspect]
  4. LISINOPRIL [Concomitant]
  5. CARVEDILOL [Concomitant]
  6. FUROSEMIDE [Concomitant]
  7. FUROSEMIDE [Concomitant]
  8. METFORMIN [Concomitant]
     Dosage: CR.
  9. LANTUS [Concomitant]
     Dosage: 1 DF = 90 UNITS.
  10. NOVOLOG [Concomitant]

REACTIONS (2)
  - Pruritus [Unknown]
  - Back pain [Unknown]
